FAERS Safety Report 25481245 (Version 1)
Quarter: 2025Q2

REPORT INFORMATION
  Report Type: Spontaneous
  Country: US (occurrence: US)
  Receive Date: 20250626
  Receipt Date: 20250626
  Transmission Date: 20250717
  Serious: No
  Sender: BLUEPRINT MEDICINES
  Company Number: US-Blueprint Medicines Corporation-2025-AER-01370

PATIENT
  Age: 48 Year
  Sex: Male

DRUGS (1)
  1. AYVAKIT [Suspect]
     Active Substance: AVAPRITINIB
     Indication: Systemic mastocytosis
     Route: 065
     Dates: start: 20230104

REACTIONS (2)
  - Illness [Unknown]
  - Product dose omission issue [Unknown]
